FAERS Safety Report 23147750 (Version 3)
Quarter: 2023Q4

REPORT INFORMATION
  Report Type: Spontaneous
  Country: JP (occurrence: JP)
  Receive Date: 20231106
  Receipt Date: 20231211
  Transmission Date: 20240110
  Serious: Yes (Hospitalization, Other)
  Sender: FDA-Public Use
  Company Number: JP-DSJP-DSJ-2023-144550

PATIENT
  Age: 7 Decade
  Sex: Male

DRUGS (18)
  1. DENOSUMAB [Suspect]
     Active Substance: DENOSUMAB
     Indication: Osteoporosis
     Dosage: 60 MILLIGRAM, Q6MO
     Route: 058
     Dates: start: 20191120
  2. DENOSUMAB [Suspect]
     Active Substance: DENOSUMAB
     Indication: Femoral neck fracture
     Dosage: UNK
     Route: 065
  3. SPIRONOLACTONE [Concomitant]
     Active Substance: SPIRONOLACTONE
     Indication: Product used for unknown indication
     Dosage: 50 MILLIGRAM
     Route: 065
  4. LASIX [Concomitant]
     Active Substance: FUROSEMIDE
     Indication: Product used for unknown indication
     Dosage: 20 MILLIGRAM
     Route: 065
  5. Ferrum [Concomitant]
     Indication: Product used for unknown indication
     Dosage: 100 MILLIGRAM
     Route: 065
  6. NEXIUM [Concomitant]
     Active Substance: ESOMEPRAZOLE MAGNESIUM
     Indication: Product used for unknown indication
     Dosage: 20 MILLIGRAM
     Route: 065
     Dates: start: 202206
  7. URSO [Concomitant]
     Active Substance: URSODIOL
     Indication: Product used for unknown indication
     Dosage: 200 MILLIGRAM
     Route: 065
  8. VIBEGRON [Concomitant]
     Active Substance: VIBEGRON
     Indication: Product used for unknown indication
     Dosage: 50 MILLIGRAM, QD
     Route: 048
  9. VIBEGRON [Concomitant]
     Active Substance: VIBEGRON
     Indication: Pollakiuria
  10. SHAKUYAKUKANZOTO [Concomitant]
     Active Substance: HERBALS
     Indication: Product used for unknown indication
     Dosage: 7.5 MILLIGRAM
     Route: 065
  11. TAMSULOSIN [Concomitant]
     Active Substance: TAMSULOSIN
     Indication: Pollakiuria
     Dosage: 0.2 MILLIGRAM, QD
     Route: 048
  12. BIO-THREE [Concomitant]
     Active Substance: HERBALS
     Indication: Constipation
     Dosage: 1 DOSAGE FORM, TID
     Route: 048
  13. OLOPATADINE [Concomitant]
     Active Substance: OLOPATADINE
     Indication: Product used for unknown indication
     Dosage: 10 MILLIGRAM
     Route: 065
  14. ALFACALCIDOL [Concomitant]
     Active Substance: ALFACALCIDOL
     Indication: Chronic kidney disease
     Dosage: 0.25 MICROGRAM, QD
     Route: 048
     Dates: start: 20180905
  15. TENELIGLIPTIN [Concomitant]
     Active Substance: TENELIGLIPTIN
     Indication: Type 2 diabetes mellitus
     Dosage: 20 MILLIGRAM, QD
     Route: 048
     Dates: start: 2022
  16. VOGLIBOSE [Concomitant]
     Active Substance: VOGLIBOSE
     Indication: Product used for unknown indication
     Dosage: 0.9 MILLIGRAM, QD
     Route: 065
  17. LEVEMIR [Concomitant]
     Active Substance: INSULIN DETEMIR
     Indication: Product used for unknown indication
     Dosage: 20 IU, QD (NOON)
     Route: 065
  18. INSULIN GLARGINE [Concomitant]
     Active Substance: INSULIN GLARGINE
     Indication: Type 2 diabetes mellitus
     Dosage: 4 INTERNATIONAL UNIT, QD
     Route: 058
     Dates: start: 20191111

REACTIONS (6)
  - Fall [Unknown]
  - Fall [Unknown]
  - Thoracic vertebral fracture [Recovering/Resolving]
  - Hepatic encephalopathy [Unknown]
  - Spinal compression fracture [Unknown]
  - Iron deficiency anaemia [Unknown]

NARRATIVE: CASE EVENT DATE: 20221101
